FAERS Safety Report 13565237 (Version 1)
Quarter: 2017Q2

REPORT INFORMATION
  Report Type: Spontaneous
  Country: US (occurrence: US)
  Receive Date: 20170519
  Receipt Date: 20170519
  Transmission Date: 20170830
  Serious: Yes (Other)
  Sender: FDA-Public Use
  Company Number: US-BAUSCH-BL-2017-012395

PATIENT
  Sex: Female

DRUGS (5)
  1. DILTIAZEM CD [Suspect]
     Active Substance: DILTIAZEM
     Indication: ANXIETY
  2. METOPROLOL. [Concomitant]
     Active Substance: METOPROLOL
     Indication: PRODUCT USED FOR UNKNOWN INDICATION
     Route: 048
  3. DILTIAZEM CD [Suspect]
     Active Substance: DILTIAZEM
     Indication: BLOOD PRESSURE ABNORMAL
     Route: 048
     Dates: start: 201703
  4. VITAMIN D3 [Concomitant]
     Active Substance: CHOLECALCIFEROL
     Indication: BONE DISORDER
     Route: 048
  5. DILTIAZEM CD [Suspect]
     Active Substance: DILTIAZEM
     Indication: PAIN

REACTIONS (2)
  - Drug ineffective [Unknown]
  - Drug use disorder [Unknown]

NARRATIVE: CASE EVENT DATE: 2017
